FAERS Safety Report 9031923 (Version 1)
Quarter: 2013Q1

REPORT INFORMATION
  Report Type: Spontaneous
  Country: US (occurrence: US)
  Receive Date: 20130125
  Receipt Date: 20130125
  Transmission Date: 20140127
  Serious: Yes (Other)
  Sender: FDA-Public Use
  Company Number: US-ELI_LILLY_AND_COMPANY-US201301004674

PATIENT
  Age: 60 Year
  Sex: Female

DRUGS (1)
  1. FORTEO [Suspect]
     Indication: OSTEOPOROSIS
     Dosage: 20 UG, QD
     Dates: start: 201209, end: 201212

REACTIONS (13)
  - Blood pressure decreased [Unknown]
  - Syncope [Recovered/Resolved]
  - Pulse absent [Unknown]
  - Malaise [Unknown]
  - Vomiting [Unknown]
  - Nausea [Recovered/Resolved]
  - Discomfort [Unknown]
  - Fear [Unknown]
  - Parkinson^s disease [Not Recovered/Not Resolved]
  - Pain [Not Recovered/Not Resolved]
  - Toothache [Unknown]
  - Limb discomfort [Unknown]
  - Dizziness [Recovered/Resolved]
